FAERS Safety Report 11492729 (Version 1)
Quarter: 2015Q3

REPORT INFORMATION
  Report Type: Spontaneous
  Country: US (occurrence: US)
  Receive Date: 20150911
  Receipt Date: 20150911
  Transmission Date: 20151125
  Serious: No
  Sender: FDA-Public Use
  Company Number: US-009507513-1509USA003771

PATIENT
  Age: 28 Year
  Sex: Female
  Weight: 67 kg

DRUGS (1)
  1. NEXPLANON [Suspect]
     Active Substance: ETONOGESTREL
     Indication: CONTRACEPTION
     Dosage: 1 ROD, THREE YEARS
     Route: 059
     Dates: start: 20141013, end: 20150904

REACTIONS (4)
  - Device breakage [Recovered/Resolved]
  - Implant site pruritus [Recovered/Resolved]
  - Menstruation irregular [Unknown]
  - Hypersensitivity [Recovered/Resolved]

NARRATIVE: CASE EVENT DATE: 20141013
